FAERS Safety Report 13695125 (Version 3)
Quarter: 2017Q3

REPORT INFORMATION
  Report Type: Spontaneous
  Country: US (occurrence: US)
  Receive Date: 20170627
  Receipt Date: 20170724
  Transmission Date: 20171127
  Serious: No
  Sender: FDA-Public Use
  Company Number: ALCN2017US004093

PATIENT
  Age: 67 Year
  Sex: Female
  Weight: 72.56 kg

DRUGS (4)
  1. SYSTANE ULTRA [Suspect]
     Active Substance: POLYETHYLENE GLYCOL 400\PROPYLENE GLYCOL
     Indication: EYE INFECTION
     Dosage: 1 GTT, UNK
     Route: 047
     Dates: start: 20170702
  2. LEVOTHYROXIN [Concomitant]
     Active Substance: LEVOTHYROXINE
     Indication: THYROID DISORDER
     Dosage: 75 UG, QD
     Route: 065
     Dates: start: 2015
  3. CIMZIA [Concomitant]
     Active Substance: CERTOLIZUMAB PEGOL
     Indication: RHEUMATOID ARTHRITIS
     Dosage: 2 DF, Q2W FOR 3 WEEKS AND 1 DF EVERY MONT FOR FUTURE
     Route: 065
     Dates: start: 20170606
  4. SYSTANE ULTRA [Suspect]
     Active Substance: POLYETHYLENE GLYCOL 400\PROPYLENE GLYCOL
     Indication: DRY EYE
     Dosage: 1 GTT, UNK
     Route: 047
     Dates: start: 20170625, end: 20170625

REACTIONS (6)
  - Eye discharge [Unknown]
  - Accidental exposure to product [Unknown]
  - Eye irritation [Recovered/Resolved]
  - Eye pain [Unknown]
  - Ocular hyperaemia [Recovered/Resolved]
  - Eye irritation [Recovered/Resolved]

NARRATIVE: CASE EVENT DATE: 20170702
